FAERS Safety Report 10267288 (Version 1)
Quarter: 2014Q2

REPORT INFORMATION
  Report Type: Other
  Country: US (occurrence: US)
  Receive Date: 20140630
  Receipt Date: 20140630
  Transmission Date: 20141212
  Serious: Yes (Other)
  Sender: FDA-Public Use
  Company Number: US-LUPIN PHARMACEUTICALS INC.-2013-01913

PATIENT
  Age: 70 Year
  Sex: Male

DRUGS (11)
  1. SIMVASTATIN [Suspect]
     Indication: PRODUCT USED FOR UNKNOWN INDICATION
     Route: 065
  2. DULOXETINE [Concomitant]
     Indication: PRODUCT USED FOR UNKNOWN INDICATION
     Route: 065
  3. MIRTAZAPINE [Concomitant]
     Indication: PRODUCT USED FOR UNKNOWN INDICATION
     Route: 065
  4. NORTRIPTYLINE [Concomitant]
     Indication: PRODUCT USED FOR UNKNOWN INDICATION
     Route: 065
  5. ARIPIPRAZOLE [Concomitant]
     Indication: PRODUCT USED FOR UNKNOWN INDICATION
     Route: 065
  6. ZOLPIDEM [Concomitant]
     Indication: ANXIETY
     Route: 065
  7. ZOLPIDEM [Concomitant]
     Indication: SLEEP DISORDER
  8. ZOLPIDEM [Concomitant]
     Indication: SOMATOFORM DISORDER
  9. LORAZEPAM [Concomitant]
     Indication: ANXIETY
     Route: 065
  10. LORAZEPAM [Concomitant]
     Indication: SLEEP DISORDER
  11. LORAZEPAM [Concomitant]
     Indication: SOMATOFORM DISORDER

REACTIONS (1)
  - Cognitive disorder [Recovered/Resolved]
